FAERS Safety Report 9256701 (Version 4)
Quarter: 2014Q1

REPORT INFORMATION
  Report Type: Spontaneous
  Country: US (occurrence: US)
  Receive Date: 20130426
  Receipt Date: 20140214
  Transmission Date: 20141002
  Serious: Yes (Hospitalization)
  Sender: FDA-Public Use
  Company Number: US-ASTRAZENECA-2013SE27277

PATIENT
  Age: 73 Year
  Sex: Female
  Weight: 81.6 kg

DRUGS (17)
  1. NEXIUM [Suspect]
     Indication: GASTROOESOPHAGEAL REFLUX DISEASE
     Route: 048
     Dates: start: 1987, end: 20110504
  2. NEXIUM [Suspect]
     Indication: GASTROOESOPHAGEAL REFLUX DISEASE
     Route: 048
     Dates: start: 1987, end: 20110504
  3. NEXIUM [Suspect]
     Indication: DYSPEPSIA
     Route: 048
     Dates: start: 1987, end: 20110504
  4. NEXIUM [Suspect]
     Indication: GASTROOESOPHAGEAL REFLUX DISEASE
     Route: 048
     Dates: start: 20021007
  5. NEXIUM [Suspect]
     Indication: GASTROOESOPHAGEAL REFLUX DISEASE
     Route: 048
     Dates: start: 20021007
  6. NEXIUM [Suspect]
     Indication: DYSPEPSIA
     Route: 048
     Dates: start: 20021007
  7. NEXIUM [Suspect]
     Indication: GASTROOESOPHAGEAL REFLUX DISEASE
     Route: 048
     Dates: start: 201001
  8. NEXIUM [Suspect]
     Indication: GASTROOESOPHAGEAL REFLUX DISEASE
     Route: 048
     Dates: start: 201001
  9. NEXIUM [Suspect]
     Indication: DYSPEPSIA
     Route: 048
     Dates: start: 201001
  10. TUMS [Concomitant]
     Dates: start: 1987, end: 2011
  11. VYTORIN [Concomitant]
     Indication: BLOOD CHOLESTEROL ABNORMAL
     Dosage: 10-40, 1 DAILY
  12. LOSARTAN HCTZ [Concomitant]
     Indication: BLOOD PRESSURE ABNORMAL
     Dosage: DAILY
  13. TRIM/HCTZ [Concomitant]
     Dosage: 37.5-25
     Dates: start: 20010813
  14. AMITRIPTYLIN [Concomitant]
     Dates: start: 20020219
  15. PRAVACHOL [Concomitant]
     Dates: start: 20020219
  16. NITROQUICK [Concomitant]
     Route: 058
     Dates: start: 20101007
  17. FOSAMAX [Concomitant]
     Indication: OSTEOPOROSIS

REACTIONS (13)
  - Gastric infection [Unknown]
  - Back disorder [Unknown]
  - Arthropathy [Unknown]
  - Osteoporosis [Unknown]
  - Wrist fracture [Unknown]
  - Bone disorder [Unknown]
  - Multiple fractures [Unknown]
  - Arthritis [Unknown]
  - Calcium deficiency [Unknown]
  - Type 2 diabetes mellitus [Unknown]
  - Osteoarthritis [Unknown]
  - Ulna fracture [Unknown]
  - Fall [Unknown]
